FAERS Safety Report 5069889-X (Version None)
Quarter: 2006Q3

REPORT INFORMATION
  Report Type: 
  Country: None (occurrence: None)
  Receive Date: 20060803
  Receipt Date: 20060728
  Transmission Date: 20061208
  Serious: Yes (Death)
  Sender: FDA-Public Use
  Company Number: TR-BRISTOL-MYERS SQUIBB COMPANY-13462858

PATIENT
  Age: 6 Year
  Sex: Male

DRUGS (4)
  1. VINCRISTINE SULFATE [Suspect]
     Indication: MEDULLOBLASTOMA
  2. CCNU [Suspect]
     Indication: MEDULLOBLASTOMA
  3. PROCARBAZINE [Suspect]
     Indication: MEDULLOBLASTOMA
  4. RADIATION THERAPY [Suspect]
     Indication: MEDULLOBLASTOMA

REACTIONS (2)
  - NON-HODGKIN'S LYMPHOMA [None]
  - TREATMENT RELATED SECONDARY MALIGNANCY [None]
